FAERS Safety Report 6930976-X (Version None)
Quarter: 2010Q3

REPORT INFORMATION
  Report Type: 
  Country: None (occurrence: None)
  Receive Date: 20100818
  Receipt Date: 20100713
  Transmission Date: 20110219
  Serious: Yes (Death)
  Sender: FDA-Public Use
  Company Number: JP-PFIZER INC-2010077905

PATIENT
  Age: 75 Year
  Sex: Male
  Weight: 43 kg

DRUGS (5)
  1. VORICONAZOLE [Suspect]
     Indication: BRONCHOPULMONARY ASPERGILLOSIS
     Dosage: 300 MG, 2X/DAY
     Route: 048
     Dates: start: 20080411, end: 20080411
  2. VORICONAZOLE [Suspect]
     Dosage: 200 MG, 2X/DAY
     Route: 048
     Dates: start: 20080412, end: 20080508
  3. VANCOMYCIN [Concomitant]
     Indication: INFECTION
     Dosage: UNK
     Route: 041
     Dates: start: 20080504, end: 20080506
  4. GANCICLOVIR [Concomitant]
     Indication: INFECTION
     Dosage: UNK
     Route: 041
     Dates: start: 20080504
  5. SOLU-MEDROL [Concomitant]
     Dosage: UNK
     Route: 041
     Dates: start: 20080504

REACTIONS (2)
  - LYMPHOMA [None]
  - RESPIRATORY FAILURE [None]
